FAERS Safety Report 15342511 (Version 3)
Quarter: 2018Q4

REPORT INFORMATION
  Report Type: Spontaneous
  Country: AU (occurrence: AU)
  Receive Date: 20180903
  Receipt Date: 20181207
  Transmission Date: 20190204
  Serious: Yes (Other)
  Sender: FDA-Public Use
  Company Number: AU-BEH-2018094462

PATIENT
  Age: 64 Year
  Sex: Female

DRUGS (14)
  1. METOPROLOL. [Concomitant]
     Active Substance: METOPROLOL
     Route: 065
  2. SYMBICORT [Concomitant]
     Active Substance: BUDESONIDE\FORMOTEROL FUMARATE DIHYDRATE
     Route: 065
  3. LOSARTAN. [Concomitant]
     Active Substance: LOSARTAN
     Route: 065
  4. COLCHICINE. [Concomitant]
     Active Substance: COLCHICINE
     Route: 065
  5. PROLIA [Concomitant]
     Active Substance: DENOSUMAB
     Route: 065
  6. POLARAMINE [Concomitant]
     Active Substance: DEXCHLORPHENIRAMINE MALEATE
     Route: 065
  7. HIZENTRA [Suspect]
     Active Substance: HUMAN IMMUNOGLOBULIN G
     Indication: NON-HODGKIN^S LYMPHOMA
     Dosage: 10 G, QW
     Route: 058
     Dates: start: 201801, end: 201808
  8. HIZENTRA [Suspect]
     Active Substance: HUMAN IMMUNOGLOBULIN G
     Indication: HYPOGAMMAGLOBULINAEMIA
     Dosage: 40 G, QMT
     Route: 058
     Dates: start: 20180830
  9. PROLIA [Suspect]
     Active Substance: DENOSUMAB
     Indication: PRODUCT USED FOR UNKNOWN INDICATION
     Dosage: UNK
     Route: 065
     Dates: start: 20180830
  10. FRUSEMIDE                          /00032601/ [Concomitant]
     Active Substance: FUROSEMIDE
     Route: 065
  11. LOSARTAN                           /01121602/ [Concomitant]
     Active Substance: LOSARTAN
  12. OMEPRAZOLE. [Concomitant]
     Active Substance: OMEPRAZOLE
     Route: 065
  13. SPIRONOLACTONE. [Concomitant]
     Active Substance: SPIRONOLACTONE
     Route: 065
  14. METOPROLOL                         /00376902/ [Concomitant]
     Active Substance: METOPROLOL TARTRATE

REACTIONS (6)
  - Pruritus [Unknown]
  - Pruritus generalised [Unknown]
  - Rash [Unknown]
  - Pruritus [Unknown]
  - Pruritus generalised [Unknown]
  - Neuropathy peripheral [Unknown]

NARRATIVE: CASE EVENT DATE: 201801
